FAERS Safety Report 7404435-4 (Version None)
Quarter: 2011Q2

REPORT INFORMATION
  Report Type: 
  Country: None (occurrence: None)
  Receive Date: 20110408
  Receipt Date: 20110331
  Transmission Date: 20111010
  Serious: Yes (Other)
  Sender: FDA-Public Use
  Company Number: US-MERCK-1009USA05572

PATIENT
  Age: 63 Year
  Sex: Female
  Weight: 55 kg

DRUGS (9)
  1. ALENDRONATE SODIUM [Suspect]
     Indication: OSTEOPOROSIS
     Route: 048
     Dates: start: 20080201, end: 20080101
  2. ASCORBIC ACID [Concomitant]
     Route: 065
  3. FOSAMAX [Suspect]
     Indication: OSTEOPOROSIS
     Route: 048
     Dates: start: 19960301, end: 20010301
  4. ALENDRONATE SODIUM [Suspect]
     Indication: OSTEOPENIA
     Route: 048
     Dates: start: 20080201, end: 20080101
  5. CALCIUM (UNSPECIFIED) AND VITAMIN D (UNSPECIFIED) [Concomitant]
     Route: 065
  6. FOSAMAX [Suspect]
     Route: 048
     Dates: start: 20010301, end: 20090501
  7. FOSAMAX [Suspect]
     Indication: OSTEOPENIA
     Route: 048
     Dates: start: 19960301, end: 20010301
  8. VITAMINS (UNSPECIFIED) [Concomitant]
     Route: 065
  9. FOSAMAX [Suspect]
     Route: 048
     Dates: start: 20010301, end: 20090501

REACTIONS (15)
  - GLAUCOMA [None]
  - THYROID DISORDER [None]
  - FEMUR FRACTURE [None]
  - ARTHROPATHY [None]
  - THELITIS [None]
  - FRACTURE [None]
  - DRUG HYPERSENSITIVITY [None]
  - PAIN IN EXTREMITY [None]
  - VAGINAL INFLAMMATION [None]
  - CYSTOCELE [None]
  - URETHRAL CARUNCLE [None]
  - RECTOCELE [None]
  - GALLBLADDER DISORDER [None]
  - CALCULUS BLADDER [None]
  - NEPHROLITHIASIS [None]
